FAERS Safety Report 20532322 (Version 1)
Quarter: 2022Q1

REPORT INFORMATION
  Report Type: Spontaneous
  Country: US (occurrence: US)
  Receive Date: 20220301
  Receipt Date: 20220301
  Transmission Date: 20220423
  Serious: Yes (Other)
  Sender: FDA-Public Use
  Company Number: US-PFIZER INC-202200269388

PATIENT
  Age: 10 Year
  Sex: Male

DRUGS (1)
  1. CEFEPIME HYDROCHLORIDE [Suspect]
     Active Substance: CEFEPIME HYDROCHLORIDE
     Dosage: 1400 MG
     Route: 037

REACTIONS (3)
  - Incorrect route of product administration [Unknown]
  - Drug level increased [Unknown]
  - Neurotoxicity [Recovered/Resolved]
